FAERS Safety Report 5466331-1 (Version None)
Quarter: 2007Q3

REPORT INFORMATION
  Report Type: 
  Country: None (occurrence: None)
  Receive Date: 20070920
  Receipt Date: 20070911
  Transmission Date: 20080115
  Serious: Yes (Other)
  Sender: FDA-Public Use
  Company Number: 2007BI012314

PATIENT
  Age: 50 Year
  Sex: Male

DRUGS (3)
  1. NATALIZUMAB [Suspect]
     Indication: MULTIPLE SCLEROSIS
     Dosage: 300 MG; QM; IV
     Route: 042
     Dates: start: 20070308, end: 20070808
  2. NATALIZUMAB [Suspect]
  3. AVONEX [Concomitant]

REACTIONS (6)
  - CONSTIPATION [None]
  - INFUSION RELATED REACTION [None]
  - NAUSEA [None]
  - ORAL INTAKE REDUCED [None]
  - PHOBIA [None]
  - SYNCOPE VASOVAGAL [None]
